FAERS Safety Report 7541255-4 (Version None)
Quarter: 2011Q2

REPORT INFORMATION
  Report Type: 
  Country: None (occurrence: None)
  Receive Date: 20110610
  Receipt Date: 20110527
  Transmission Date: 20111010
  Serious: No
  Sender: FDA-Public Use
  Company Number: DE-GENENTECH-319350

PATIENT
  Sex: Male

DRUGS (2)
  1. XOLAIR [Suspect]
     Indication: PRODUCT USED FOR UNKNOWN INDICATION
     Dosage: 150 MG, 1/MONTH
     Dates: start: 20100101
  2. XOLAIR [Suspect]
     Dosage: UNK
     Dates: start: 20110301

REACTIONS (2)
  - VOMITING [None]
  - NAUSEA [None]
